FAERS Safety Report 20983792 (Version 1)
Quarter: 2022Q2

REPORT INFORMATION
  Report Type: Spontaneous
  Country: CN (occurrence: CN)
  Receive Date: 20220621
  Receipt Date: 20220621
  Transmission Date: 20220721
  Serious: No
  Sender: FDA-Public Use
  Company Number: CN-CSTONE PHARMACEUTICALS (SUZHOU) CO., LTD.-2022CN00654

PATIENT

DRUGS (2)
  1. AYVAKIT [Suspect]
     Active Substance: AVAPRITINIB
     Indication: Product used for unknown indication
     Dosage: 200 MILLIGRAM, UNKNOWN
     Route: 048
     Dates: start: 202201
  2. AYVAKIT [Suspect]
     Active Substance: AVAPRITINIB
     Dosage: 150 MILLIGRAM, UNKNOWN
     Route: 048

REACTIONS (4)
  - Hair colour changes [Unknown]
  - Orbital oedema [Unknown]
  - Diarrhoea [Unknown]
  - Dizziness [Unknown]
